FAERS Safety Report 5796982-6 (Version None)
Quarter: 2008Q3

REPORT INFORMATION
  Report Type: 
  Country: None (occurrence: None)
  Receive Date: 20080701
  Receipt Date: 20080616
  Transmission Date: 20090109
  Serious: Yes (Disabling)
  Sender: FDA-Public Use
  Company Number: GB-GENENTECH-263219

PATIENT
  Sex: Female

DRUGS (7)
  1. BEVACIZUMAB [Suspect]
     Indication: COLON CANCER
     Dosage: 480 UNIT, Q3W
     Route: 042
     Dates: start: 20071123
  2. CAPECITABINE [Suspect]
     Indication: COLON CANCER
     Dosage: 3500 UNIT, BID
     Route: 048
     Dates: start: 20071123
  3. PYRIDOXINE [Suspect]
     Indication: ERYTHEMA
     Dates: start: 20080124
  4. ACYCLOVIR [Suspect]
     Indication: CHEILITIS
     Dosage: UNK, UNK
     Dates: start: 20071213
  5. SIMVASTATIN [Concomitant]
     Indication: DRUG USE FOR UNKNOWN INDICATION
     Dates: start: 20070914
  6. DIFFLAM [Concomitant]
     Indication: DRUG USE FOR UNKNOWN INDICATION
     Dates: start: 20071213
  7. ATENOLOL [Concomitant]
     Indication: DRUG USE FOR UNKNOWN INDICATION
     Dates: start: 20070914

REACTIONS (1)
  - CHEILITIS [None]
